FAERS Safety Report 13833446 (Version 2)
Quarter: 2017Q3

REPORT INFORMATION
  Report Type: Spontaneous
  Country: KR (occurrence: KR)
  Receive Date: 20170804
  Receipt Date: 20170810
  Transmission Date: 20171127
  Serious: No
  Sender: FDA-Public Use
  Company Number: KR-009507513-1706KOR000224

PATIENT
  Age: 69 Year
  Sex: Male
  Weight: 74.1 kg

DRUGS (38)
  1. ALOXI [Concomitant]
     Active Substance: PALONOSETRON HYDROCHLORIDE
     Indication: PROPHYLAXIS OF NAUSEA AND VOMITING
     Dosage: 1 DF, QD
     Route: 042
     Dates: start: 20170322, end: 20170322
  2. NEULASTA [Concomitant]
     Active Substance: PEGFILGRASTIM
     Indication: PROPHYLAXIS
     Dosage: 1 DF, QD
     Route: 058
     Dates: start: 20170404, end: 20170404
  3. VASOTROL [Concomitant]
     Indication: HYPERTENSION
     Dosage: 1 DF, BID
     Route: 048
     Dates: start: 20170301
  4. VFEND [Concomitant]
     Active Substance: VORICONAZOLE
     Indication: INFECTION PROPHYLAXIS
     Dosage: 200 MG, BID
     Route: 042
     Dates: start: 20170317, end: 20170329
  5. NASEA [Concomitant]
     Active Substance: RAMOSETRON HYDROCHLORIDE
     Indication: PROPHYLAXIS OF NAUSEA AND VOMITING
     Dosage: 1 DF, QD
     Route: 042
     Dates: start: 20170517, end: 20170517
  6. SULFAMETHOXAZOLE (+) TRIMETHOPRIM [Concomitant]
     Active Substance: SULFAMETHOXAZOLE\TRIMETHOPRIM
     Indication: INFECTION PROPHYLAXIS
     Dosage: 1 DF, QD
     Route: 048
     Dates: start: 20170301
  7. VFEND [Concomitant]
     Active Substance: VORICONAZOLE
     Indication: INFECTION PROPHYLAXIS
     Dosage: 1 DF, BID
     Route: 048
     Dates: start: 20170330, end: 20170514
  8. SOLONDO [Concomitant]
     Active Substance: PREDNISOLONE
     Dosage: 4 DF, BID
     Route: 048
     Dates: start: 20170425, end: 20170429
  9. MABTHERA [Concomitant]
     Active Substance: RITUXIMAB
     Indication: B-CELL LYMPHOMA
     Dosage: 148 MG, QD, CYCLE 1
     Route: 042
     Dates: start: 20170403, end: 20170403
  10. ASPIRIN. [Concomitant]
     Active Substance: ASPIRIN
     Indication: CORONARY ARTERY OCCLUSION
     Dosage: 1 DF, QD
     Route: 048
     Dates: start: 20170301
  11. CEFTAZIDIME. [Concomitant]
     Active Substance: CEFTAZIDIME
     Indication: INFECTION PROPHYLAXIS
     Dosage: 2 DF, TID
     Route: 042
     Dates: start: 20170320, end: 20170326
  12. TNA PERI [Concomitant]
     Dosage: 1 DF, QD
     Route: 042
     Dates: start: 20170512, end: 20170513
  13. ALOXI [Concomitant]
     Active Substance: PALONOSETRON HYDROCHLORIDE
     Indication: PROPHYLAXIS OF NAUSEA AND VOMITING
     Dosage: 5 ML, QD
     Route: 042
     Dates: start: 20170403, end: 20170403
  14. ALOXI [Concomitant]
     Active Substance: PALONOSETRON HYDROCHLORIDE
     Dosage: 5 ML, QD
     Route: 042
     Dates: start: 20170525, end: 20170525
  15. EMEND (FOSAPREPITANT DIMEGLUMINE) [Suspect]
     Active Substance: FOSAPREPITANT DIMEGLUMINE
     Indication: PROPHYLAXIS OF NAUSEA AND VOMITING
     Dosage: 150 MG, ONCE
     Route: 042
     Dates: start: 20170403, end: 20170403
  16. ENDOXAN [Concomitant]
     Active Substance: CYCLOPHOSPHAMIDE
     Dosage: 870 MG, QD, CYCLE 2
     Route: 042
     Dates: start: 20170425, end: 20170425
  17. ADRIAMYCIN [Concomitant]
     Active Substance: DOXORUBICIN HYDROCHLORIDE
     Indication: B-CELL LYMPHOMA
     Dosage: 43 MG, QD, CYCLE 1
     Route: 042
     Dates: start: 20170403, end: 20170403
  18. ADRIAMYCIN [Concomitant]
     Active Substance: DOXORUBICIN HYDROCHLORIDE
     Dosage: 43 MG, QD, CYCLE 2
     Route: 042
     Dates: start: 20170425, end: 20170425
  19. DIOVAN [Concomitant]
     Active Substance: VALSARTAN
     Indication: HYPERTENSION
     Dosage: 0.5 DF, QD
     Route: 048
     Dates: start: 20170301
  20. TRIDOL (TRAMADOL HYDROCHLORIDE) [Concomitant]
     Indication: CANCER PAIN
     Dosage: 1 DF, QD
     Route: 042
     Dates: start: 20170328, end: 20170401
  21. VINCRISTINE SULFATE. [Concomitant]
     Active Substance: VINCRISTINE SULFATE
     Dosage: 1 MG, QD, CYCLE 2
     Route: 042
     Dates: start: 20170425, end: 20170425
  22. JANUVIA [Concomitant]
     Active Substance: SITAGLIPTIN PHOSPHATE
     Indication: DIABETES MELLITUS
     Dosage: 1 DF, QD
     Route: 048
     Dates: start: 20170301
  23. NEULASTA [Concomitant]
     Active Substance: PEGFILGRASTIM
     Dosage: 1 DF, QD
     Route: 058
     Dates: start: 20170426, end: 20170426
  24. TNA PERI [Concomitant]
     Indication: NUTRITIONAL SUPPLEMENTATION
     Dosage: 1 DF, QD
     Route: 042
     Dates: start: 20170312, end: 20170327
  25. CYMBALTA [Concomitant]
     Active Substance: DULOXETINE HYDROCHLORIDE
     Indication: DIABETIC NEUROPATHY
     Dosage: 1 DF, QD
     Route: 048
     Dates: start: 20170207
  26. MABTHERA [Concomitant]
     Active Substance: RITUXIMAB
     Dosage: 150 MG, QD, CYCLE 2
     Route: 042
     Dates: start: 20170425, end: 20170425
  27. MABTHERA [Concomitant]
     Active Substance: RITUXIMAB
     Dosage: 500 MG, QD, CYCLE 2
     Route: 042
     Dates: start: 20170425, end: 20170425
  28. DIAMICRON MR [Concomitant]
     Active Substance: GLICLAZIDE
     Indication: DIABETES MELLITUS
     Dosage: 1 DF, BID
     Route: 048
     Dates: start: 20170301
  29. FLUCONAZOLE. [Concomitant]
     Active Substance: FLUCONAZOLE
     Indication: INFECTION PROPHYLAXIS
     Dosage: 2 DF, BID
     Route: 048
     Dates: start: 20170301
  30. MEGESTROL ACETATE. [Concomitant]
     Active Substance: MEGESTROL ACETATE
     Indication: DECREASED APPETITE
     Dosage: 1 DF, QD
     Route: 048
     Dates: start: 20170325, end: 20170524
  31. OXYNORM [Concomitant]
     Active Substance: OXYCODONE HYDROCHLORIDE
     Indication: CANCER PAIN
     Dosage: 3 DF, QD
     Route: 042
     Dates: start: 20170320, end: 20170324
  32. MABTHERA [Concomitant]
     Active Substance: RITUXIMAB
     Indication: B-CELL LYMPHOMA
     Dosage: 500 MG, QD, CYCLE 1
     Route: 042
     Dates: start: 20170403, end: 20170403
  33. VINCRISTINE SULFATE. [Concomitant]
     Active Substance: VINCRISTINE SULFATE
     Indication: B-CELL LYMPHOMA
     Dosage: 1 MG, QD, CYCLE 1
     Route: 042
     Dates: start: 20170403, end: 20170403
  34. SOLONDO [Concomitant]
     Active Substance: PREDNISOLONE
     Indication: B-CELL LYMPHOMA
     Dosage: 4 DF, BID
     Route: 048
     Dates: start: 20170403, end: 20170407
  35. LEVOFLOXACIN. [Concomitant]
     Active Substance: LEVOFLOXACIN
     Indication: INFECTION PROPHYLAXIS
     Dosage: 2 DF, QD
     Route: 048
     Dates: start: 20170411, end: 20170524
  36. EMEND (FOSAPREPITANT DIMEGLUMINE) [Suspect]
     Active Substance: FOSAPREPITANT DIMEGLUMINE
     Dosage: 150 MG, ONCE
     Route: 042
     Dates: start: 20170425, end: 20170425
  37. EMEND (FOSAPREPITANT DIMEGLUMINE) [Suspect]
     Active Substance: FOSAPREPITANT DIMEGLUMINE
     Dosage: 150 MG, ONCE
     Route: 042
     Dates: start: 20170517, end: 20170517
  38. ENDOXAN [Concomitant]
     Active Substance: CYCLOPHOSPHAMIDE
     Indication: B-CELL LYMPHOMA
     Dosage: 865 MG, QD, CYCLE 1
     Route: 042
     Dates: start: 20170403, end: 20170403

REACTIONS (2)
  - Laceration [Recovered/Resolved]
  - Hypoglycaemia [Recovered/Resolved]

NARRATIVE: CASE EVENT DATE: 20170513
